FAERS Safety Report 8733419 (Version 2)
Quarter: 2012Q4

REPORT INFORMATION
  Report Type: Report from Study
  Country: SE (occurrence: SE)
  Receive Date: 20120821
  Receipt Date: 20120912
  Transmission Date: 20130627
  Serious: Yes (Death, Hospitalization)
  Sender: FDA-Public Use
  Company Number: SE-CELGENEUS-150-21880-12081128

PATIENT
  Age: 77 Year
  Sex: Male
  Weight: 86.2 kg

DRUGS (7)
  1. REVLIMID [Suspect]
     Indication: PANCREATIC CANCER
     Dosage: 25 Milligram
     Route: 048
     Dates: start: 20120713, end: 20120727
  2. DALTEPARIN SODIUM [Concomitant]
     Indication: DRUG USE FOR UNKNOWN INDICATION
     Route: 058
     Dates: start: 20120713
  3. MORPHINE [Concomitant]
     Indication: PAIN
     Route: 048
  4. CEFTAXIM [Concomitant]
     Indication: ERYSIPELAS
     Dosage: 3 Gram
     Route: 041
     Dates: start: 20120731, end: 20120801
  5. KLOXACILLIN [Concomitant]
     Indication: ERYSIPELAS
     Dosage: 6 Gram
     Route: 041
     Dates: start: 20120801, end: 20120804
  6. HALOPERIDOL [Concomitant]
     Indication: AGITATION
     Route: 041
     Dates: start: 20120803
  7. HALOPERIDOL [Concomitant]
     Indication: HALLUCINATIONS

REACTIONS (1)
  - Somnolence [Fatal]
